FAERS Safety Report 10477495 (Version 1)
Quarter: 2014Q3

REPORT INFORMATION
  Report Type: Spontaneous
  Country: SE (occurrence: SE)
  Receive Date: 20140926
  Receipt Date: 20140926
  Transmission Date: 20150326
  Serious: Yes (Life-Threatening, Hospitalization)
  Sender: FDA-Public Use
  Company Number: SE-AUROBINDO-AUR-APL-2014-10217

PATIENT
  Age: 48 Year
  Sex: Male

DRUGS (7)
  1. SPASMOFEN [Concomitant]
     Active Substance: CODEINE HYDROCHLORIDE\METHSCOPOLAMINE NITRATE\MORPHINE HYDROCHLORIDE\ NOSCAPINE HYDROCHLORIDE\PAPAVERINE HYDROCHLORIDE
     Indication: PRODUCT USED FOR UNKNOWN INDICATION
     Dosage: UNK
     Route: 065
  2. TROMBYL [Suspect]
     Active Substance: ASPIRIN
     Indication: PRODUCT USED FOR UNKNOWN INDICATION
     Dosage: 75 MG, DAILY
     Route: 065
     Dates: start: 20120516
  3. STESOLID [Concomitant]
     Active Substance: DIAZEPAM
     Indication: PRODUCT USED FOR UNKNOWN INDICATION
     Dosage: UNK
     Route: 065
  4. SIMVASTATIN FILM-COATED TABLETS 40MG (SIMVASTATIN) TABLET, 40MG? [Suspect]
     Active Substance: SIMVASTATIN
     Indication: PRODUCT USED FOR UNKNOWN INDICATION
     Dosage: 40 MG, ONCE A DAY
     Route: 065
     Dates: start: 20120516
  5. TEGRETOL [Concomitant]
     Active Substance: CARBAMAZEPINE
     Indication: PRODUCT USED FOR UNKNOWN INDICATION
     Dosage: UNK
     Route: 065
  6. INNOHEP [Suspect]
     Active Substance: TINZAPARIN SODIUM
     Indication: PRODUCT USED FOR UNKNOWN INDICATION
     Dosage: 140000 IU, UNK
     Route: 065
     Dates: start: 20130129
  7. WARAN [Suspect]
     Active Substance: WARFARIN SODIUM
     Indication: PRODUCT USED FOR UNKNOWN INDICATION
     Dosage: UNK
     Route: 065

REACTIONS (8)
  - Suicide attempt [Recovered/Resolved]
  - Refusal of treatment by patient [None]
  - Tachycardia [Unknown]
  - Body temperature increased [None]
  - Activated partial thromboplastin time prolonged [None]
  - Pyruvate kinase increased [None]
  - Anxiety [Unknown]
  - Poisoning [Recovered/Resolved]

NARRATIVE: CASE EVENT DATE: 20130531
